FAERS Safety Report 21837980 (Version 4)
Quarter: 2023Q1

REPORT INFORMATION
  Report Type: Spontaneous
  Country: US (occurrence: US)
  Receive Date: 20230109
  Receipt Date: 20230208
  Transmission Date: 20230418
  Serious: No
  Sender: FDA-Public Use
  Company Number: US-PFIZER INC-202300002399

PATIENT
  Age: 12 Year
  Sex: Male

DRUGS (6)
  1. GENOTROPIN [Suspect]
     Active Substance: SOMATROPIN
     Indication: Growth hormone deficiency
     Dosage: 1.5 (NO UNIT)
     Dates: start: 202212, end: 20221228
  2. GENOTROPIN [Suspect]
     Active Substance: SOMATROPIN
     Dosage: 1.6 (NO UNIT) ON EVEN DAYS
     Dates: start: 202212, end: 20221228
  3. GENOTROPIN [Suspect]
     Active Substance: SOMATROPIN
     Dosage: 1.4 (NO UNIT) ON ODD DAYS
     Dates: start: 202212, end: 20221228
  4. GENOTROPIN [Suspect]
     Active Substance: SOMATROPIN
     Dosage: 1.4 (NO UNIT), 1X/DAY
     Dates: start: 20221216
  5. GENOTROPIN [Suspect]
     Active Substance: SOMATROPIN
     Dosage: 1.6 (NO UNIT), 1X/DAY
     Dates: start: 20221216
  6. VYVANSE [Concomitant]
     Active Substance: LISDEXAMFETAMINE DIMESYLATE
     Indication: Attention deficit hyperactivity disorder
     Dosage: 20 MG

REACTIONS (7)
  - Drug dose omission by device [Unknown]
  - Device information output issue [Unknown]
  - Device leakage [Unknown]
  - Accidental exposure to product [Unknown]
  - Exposure via skin contact [Unknown]
  - Product prescribing error [Unknown]
  - Incorrect dose administered by device [Unknown]

NARRATIVE: CASE EVENT DATE: 20221201
